FAERS Safety Report 16247926 (Version 1)
Quarter: 2019Q2

REPORT INFORMATION
  Report Type: Spontaneous
  Country: US (occurrence: US)
  Receive Date: 20190324
  Receipt Date: 20190324
  Transmission Date: 20190711
  Serious: Yes (Hospitalization)
  Sender: FDA-Public Use
  Company Number: None

PATIENT
  Age: 58 Year
  Sex: Female
  Weight: 91.8 kg

DRUGS (1)
  1. ASPIRIN. [Suspect]
     Active Substance: ASPIRIN
     Dates: end: 20190218

REACTIONS (3)
  - Pulmonary embolism [None]
  - Metastases to meninges [None]
  - Acute coronary syndrome [None]

NARRATIVE: CASE EVENT DATE: 20190218
